FAERS Safety Report 8479088-7 (Version None)
Quarter: 2012Q2

REPORT INFORMATION
  Report Type: 
  Country: None (occurrence: None)
  Receive Date: 20120629
  Receipt Date: 20120618
  Transmission Date: 20120825
  Serious: Yes (Hospitalization)
  Sender: FDA-Public Use
  Company Number: FR-BRISTOL-MYERS SQUIBB COMPANY-16699597

PATIENT
  Age: 47 Year
  Sex: Female

DRUGS (5)
  1. CLOZAPINE [Suspect]
     Indication: SCHIZOPHRENIA
     Dosage: 1DF=25 TO 75 MG
     Route: 048
     Dates: start: 20120505, end: 20120506
  2. ABILIFY [Suspect]
     Indication: SCHIZOPHRENIA
     Route: 048
     Dates: start: 20120419, end: 20120504
  3. TERCIAN [Concomitant]
     Dosage: TERCIAN 25MG IS THE STRENGTH. 1DF= 1.5 UNIT NOS
  4. XANAX [Concomitant]
     Dosage: XANAX 0.5 IS THE STRENGTH 1DF=1.5 UNIT NOS
  5. LEVOTHYROXINE SODIUM [Concomitant]

REACTIONS (5)
  - DYSKINESIA [None]
  - DEEP VEIN THROMBOSIS [None]
  - PULMONARY EMBOLISM [None]
  - DECREASED APPETITE [None]
  - GENERAL PHYSICAL HEALTH DETERIORATION [None]
